FAERS Safety Report 10006290 (Version 2)
Quarter: 2014Q3

REPORT INFORMATION
  Report Type: Spontaneous
  Country: US (occurrence: US)
  Receive Date: 20140313
  Receipt Date: 20140718
  Transmission Date: 20150326
  Serious: Yes (Other)
  Sender: FDA-Public Use
  Company Number: US-BAYER-2014-037143

PATIENT
  Age: 23 Year
  Sex: Female

DRUGS (2)
  1. YASMIN [Suspect]
     Active Substance: DROSPIRENONE\ETHINYL ESTRADIOL
     Dosage: UNK
     Dates: start: 200809, end: 20081103
  2. CIPROFLOXACIN. [Concomitant]
     Active Substance: CIPROFLOXACIN

REACTIONS (6)
  - Pain [None]
  - General physical health deterioration [None]
  - Emotional distress [None]
  - Anxiety [None]
  - Injury [None]
  - Pulmonary embolism [None]

NARRATIVE: CASE EVENT DATE: 20081103
